FAERS Safety Report 8481215-2 (Version None)
Quarter: 2012Q2

REPORT INFORMATION
  Report Type: 
  Country: None (occurrence: None)
  Receive Date: 20120620
  Receipt Date: 20120608
  Transmission Date: 20120825
  Serious: Yes (Hospitalization)
  Sender: FDA-Public Use
  Company Number: 2012SP032094

PATIENT
  Age: 74 Year
  Sex: Female

DRUGS (10)
  1. TRAZODONE HCL [Concomitant]
  2. LORAZEPAM [Concomitant]
  3. SYCREST (ASENAPINE /05706901/) (10 MG) [Suspect]
     Indication: BIPOLAR I DISORDER
     Dosage: 5 MG;QD;SL
     Route: 060
     Dates: start: 20120327, end: 20120508
  4. SYCREST (ASENAPINE /05706901/) (10 MG) [Suspect]
     Indication: MANIA
     Dosage: 5 MG;QD;SL
     Route: 060
     Dates: start: 20120327, end: 20120508
  5. NOZINAN [Concomitant]
  6. LITHIUM CARBONATE [Concomitant]
  7. ZYPREXA [Concomitant]
  8. RISPERDAL [Concomitant]
  9. LORAZEPAM [Concomitant]
  10. DEPAKENE [Concomitant]

REACTIONS (6)
  - LETHARGY [None]
  - STUPOR [None]
  - TOXICITY TO VARIOUS AGENTS [None]
  - SEDATION [None]
  - DRUG INTERACTION [None]
  - CONFUSIONAL STATE [None]
